FAERS Safety Report 4309420-7 (Version None)
Quarter: 2004Q1

REPORT INFORMATION
  Report Type: 
  Country: None (occurrence: None)
  Receive Date: 20040301
  Receipt Date: 20040216
  Transmission Date: 20041129
  Serious: Yes (Death)
  Sender: FDA-Public Use
  Company Number: S04-FIN-00589-00

PATIENT
  Age: 74 Year
  Sex: Female

DRUGS (15)
  1. EBIXA (MEMANTINE) [Suspect]
     Indication: DEMENTIA
     Dosage: 5 MG QD PO
     Route: 048
     Dates: start: 20031211, end: 20031215
  2. MAREVAN ^BRITISH DRUG HOUSES^ (WARFARIN SODIUM) [Concomitant]
  3. SPASMOLYT (TROSPIUM CHLORIDE) [Concomitant]
  4. REMERON [Concomitant]
  5. TRILEPTAL [Concomitant]
  6. DIGOXIN [Concomitant]
  7. VERPAMIL (VERAPAMIL HYDROCHLORIDE) [Concomitant]
  8. ATACAND [Concomitant]
  9. DEPRAKINE (VALPROATE SODIUM) [Concomitant]
  10. FUROSEMIDE [Concomitant]
  11. REMINYL (GALANTAMINE) [Concomitant]
  12. PANADOL (PARACETAMOL) [Concomitant]
  13. NORFLOXACIN [Concomitant]
  14. NITROFUR-C [Concomitant]
  15. ZINACEF [Concomitant]

REACTIONS (9)
  - ATRIAL FIBRILLATION [None]
  - BALANCE DISORDER [None]
  - CEREBRAL ARTERY EMBOLISM [None]
  - CEREBRAL INFARCTION [None]
  - CONFUSIONAL STATE [None]
  - IMPAIRED SELF-CARE [None]
  - LOSS OF CONSCIOUSNESS [None]
  - PULSE ABSENT [None]
  - SPEECH DISORDER [None]
